FAERS Safety Report 16243357 (Version 2)
Quarter: 2019Q2

REPORT INFORMATION
  Report Type: Spontaneous
  Country: US (occurrence: US)
  Receive Date: 20190426
  Receipt Date: 20190515
  Transmission Date: 20190711
  Serious: Yes (Other)
  Sender: FDA-Public Use
  Company Number: US-BAYER-2019-080351

PATIENT
  Age: 32 Year
  Sex: Female

DRUGS (1)
  1. KYLEENA [Suspect]
     Active Substance: LEVONORGESTREL
     Indication: CONTRACEPTION
     Dosage: 17.5 MCG/24HR, CONT
     Route: 015
     Dates: start: 20180621, end: 20190405

REACTIONS (5)
  - Pregnancy with contraceptive device [None]
  - Abortion spontaneous [None]
  - Dizziness [Not Recovered/Not Resolved]
  - Drug ineffective [None]
  - Inner ear disorder [None]

NARRATIVE: CASE EVENT DATE: 2019
